FAERS Safety Report 11117274 (Version 1)
Quarter: 2015Q2

REPORT INFORMATION
  Report Type: Report from Study
  Country: CA (occurrence: CA)
  Receive Date: 20150515
  Receipt Date: 20150515
  Transmission Date: 20150821
  Serious: Yes (Death)
  Sender: FDA-Public Use
  Company Number: PHHY2015CA043358

PATIENT
  Age: 51 Year
  Sex: Female

DRUGS (2)
  1. SANDOSTATIN LAR DEPOT [Suspect]
     Active Substance: OCTREOTIDE ACETATE
     Indication: OVARIAN CANCER RECURRENT
     Dosage: 20 MG, QMO
     Route: 030
     Dates: start: 20150305
  2. SANDOSTATIN [Suspect]
     Active Substance: OCTREOTIDE ACETATE
     Indication: OVARIAN CANCER RECURRENT
     Dosage: 100 UG, TID
     Route: 058

REACTIONS (3)
  - Ovarian cancer [Fatal]
  - Blood pressure decreased [Unknown]
  - Off label use [Unknown]

NARRATIVE: CASE EVENT DATE: 20150407
